FAERS Safety Report 7517869-4 (Version None)
Quarter: 2011Q2

REPORT INFORMATION
  Report Type: 
  Country: None (occurrence: None)
  Receive Date: 20110526
  Receipt Date: 20110526
  Transmission Date: 20111010
  Serious: No
  Sender: FDA-Public Use
  Company Number: None

PATIENT
  Sex: Female

DRUGS (1)
  1. BRIMONIDINE TARTRATE [Suspect]

REACTIONS (4)
  - INSTILLATION SITE IRRITATION [None]
  - PRODUCT SUBSTITUTION ISSUE [None]
  - INSTILLATION SITE ERYTHEMA [None]
  - INSTILLATION SITE PAIN [None]
